FAERS Safety Report 24898274 (Version 2)
Quarter: 2025Q1

REPORT INFORMATION
  Report Type: Spontaneous
  Country: CA (occurrence: CA)
  Receive Date: 20250129
  Receipt Date: 20250212
  Transmission Date: 20250409
  Serious: Yes (Other)
  Sender: INTERCEPT PHARMACEUTICALS
  Company Number: CA-ADVANZ PHARMA-202212008983

PATIENT
  Age: 55 Year
  Sex: Female
  Weight: 60 kg

DRUGS (8)
  1. OCALIVA [Suspect]
     Active Substance: OBETICHOLIC ACID
     Indication: Primary biliary cholangitis
     Route: 048
     Dates: start: 20180123, end: 2019
  2. OCALIVA [Suspect]
     Active Substance: OBETICHOLIC ACID
     Route: 048
  3. OCALIVA [Suspect]
     Active Substance: OBETICHOLIC ACID
     Route: 048
  4. OCALIVA [Suspect]
     Active Substance: OBETICHOLIC ACID
     Dosage: 10 MILLIGRAM, QD
     Route: 048
     Dates: start: 2019, end: 20241116
  5. OCALIVA [Suspect]
     Active Substance: OBETICHOLIC ACID
     Dosage: 5 MILLIGRAM, QD
     Route: 048
     Dates: start: 20241116
  6. OCALIVA [Suspect]
     Active Substance: OBETICHOLIC ACID
     Route: 048
  7. URSO [Suspect]
     Active Substance: URSODIOL
     Indication: Product used for unknown indication
     Route: 048
  8. URSO [Suspect]
     Active Substance: URSODIOL
     Dates: start: 2024

REACTIONS (41)
  - Cholestasis [Unknown]
  - Hyperhidrosis [Recovered/Resolved]
  - Progressive massive fibrosis [Not Recovered/Not Resolved]
  - Hepatic fibrosis [Unknown]
  - Myalgia [Unknown]
  - Frequent bowel movements [Unknown]
  - Dyspepsia [Recovering/Resolving]
  - Tendon pain [Unknown]
  - Skin odour abnormal [Unknown]
  - Bone density decreased [Recovered/Resolved]
  - Dry eye [Unknown]
  - Skin discolouration [Unknown]
  - Osteopenia [Unknown]
  - Insomnia [Unknown]
  - Dry mouth [Unknown]
  - Vasoconstriction [Unknown]
  - Sleep disorder [Unknown]
  - Diarrhoea [Unknown]
  - Alopecia [Unknown]
  - Pollakiuria [Unknown]
  - Dehydration [Unknown]
  - Feeling abnormal [Unknown]
  - Photosensitivity reaction [Unknown]
  - Influenza [Unknown]
  - Conjunctivitis [Unknown]
  - Raynaud^s phenomenon [Unknown]
  - Increased liver stiffness [Unknown]
  - Aspartate aminotransferase abnormal [Unknown]
  - Alanine aminotransferase abnormal [Unknown]
  - Liver function test abnormal [Unknown]
  - Blood alkaline phosphatase abnormal [Unknown]
  - Asthenia [Unknown]
  - Abdominal pain [Unknown]
  - Pruritus [Not Recovered/Not Resolved]
  - Arthralgia [Unknown]
  - Rash macular [Unknown]
  - Faeces hard [Unknown]
  - Abdominal discomfort [Unknown]
  - Peripheral swelling [Unknown]
  - Palpitations [Recovered/Resolved]
  - Drug effect less than expected [Unknown]

NARRATIVE: CASE EVENT DATE: 20240701
